FAERS Safety Report 11331260 (Version 1)
Quarter: 2015Q3

REPORT INFORMATION
  Report Type: Spontaneous
  Country: US (occurrence: None)
  Receive Date: 20150730
  Receipt Date: 20150730
  Transmission Date: 20151125
  Serious: Yes (Other)
  Sender: FDA-Public Use
  Company Number: None

PATIENT
  Age: 24 Year
  Sex: Female
  Weight: 78.02 kg

DRUGS (2)
  1. CITALOPRAM [Suspect]
     Active Substance: CITALOPRAM HYDROBROMIDE
     Dosage: 40MG?1 TABLET?BEDTIME?BY MOUTH?THERAPY?01-01-09?NEVER
     Route: 048
  2. RISPERIDONE 2MG [Suspect]
     Active Substance: RISPERIDONE
     Indication: DEPRESSION
     Dosage: 2MG?1 TABLET?MORNING?BY MOUTH?THERAPY?01-01-09?NEVER
     Route: 048
     Dates: start: 20090101

REACTIONS (13)
  - Headache [None]
  - Fatigue [None]
  - Gastric disorder [None]
  - Libido decreased [None]
  - Hyperhidrosis [None]
  - Increased appetite [None]
  - Constipation [None]
  - Dry mouth [None]
  - Feeling of body temperature change [None]
  - Dizziness [None]
  - Somnolence [None]
  - Abdominal pain upper [None]
  - Weight increased [None]

NARRATIVE: CASE EVENT DATE: 20150714
